FAERS Safety Report 20053901 (Version 1)
Quarter: 2021Q4

REPORT INFORMATION
  Report Type: Spontaneous
  Country: ES (occurrence: ES)
  Receive Date: 20211110
  Receipt Date: 20211110
  Transmission Date: 20220303
  Serious: Yes (Life-Threatening, Hospitalization)
  Sender: FDA-Public Use
  Company Number: None

PATIENT
  Age: 65 Year
  Sex: Female

DRUGS (3)
  1. REMICADE [Suspect]
     Active Substance: INFLIXIMAB
     Indication: Crohn^s disease
     Dosage: 5MG/KG CADA 6 SEMANAS
     Route: 042
     Dates: start: 20150915, end: 20210322
  2. REMICADE [Suspect]
     Active Substance: INFLIXIMAB
     Route: 042
     Dates: start: 20120315, end: 20150915
  3. METHOTREXATE [Suspect]
     Active Substance: METHOTREXATE
     Indication: Crohn^s disease
     Dosage: 10MG/SEM
     Route: 058
     Dates: start: 20140301, end: 20210329

REACTIONS (1)
  - Angioimmunoblastic T-cell lymphoma [Recovering/Resolving]

NARRATIVE: CASE EVENT DATE: 20210421
